FAERS Safety Report 20362847 (Version 3)
Quarter: 2022Q1

REPORT INFORMATION
  Report Type: Spontaneous
  Country: JP (occurrence: JP)
  Receive Date: 20220121
  Receipt Date: 20220224
  Transmission Date: 20220424
  Serious: Yes (Death, Other)
  Sender: FDA-Public Use
  Company Number: JP-AMGEN-JPNSP2022006983

PATIENT
  Age: 72 Year
  Sex: Female

DRUGS (2)
  1. BLINCYTO [Suspect]
     Active Substance: BLINATUMOMAB
     Indication: B precursor type acute leukaemia
     Dosage: 5 MICROGRAM/SQ. METER
     Route: 041
     Dates: start: 20211227
  2. BLINCYTO [Suspect]
     Active Substance: BLINATUMOMAB
     Dosage: 15 MICROGRAM/SQ. METER
     Route: 041

REACTIONS (6)
  - Acute lymphocytic leukaemia recurrent [Fatal]
  - CSF protein abnormal [Unknown]
  - Pyrexia [Recovered/Resolved]
  - Aggression [Recovering/Resolving]
  - Restlessness [Recovering/Resolving]
  - White blood cell count decreased [Unknown]
